FAERS Safety Report 7466188-3 (Version None)
Quarter: 2011Q2

REPORT INFORMATION
  Report Type: 
  Country: None (occurrence: None)
  Receive Date: 20110509
  Receipt Date: 20110425
  Transmission Date: 20111010
  Serious: Yes (Other)
  Sender: FDA-Public Use
  Company Number: US-ELI_LILLY_AND_COMPANY-US201104008062

PATIENT
  Sex: Female

DRUGS (2)
  1. XANAX [Concomitant]
     Dosage: UNK, UNKNOWN
     Route: 065
  2. CYMBALTA [Suspect]
     Indication: DEPRESSION
     Dosage: 90 MG, QD
     Route: 065
     Dates: start: 20100101

REACTIONS (13)
  - LOSS OF CONSCIOUSNESS [None]
  - CHEST PAIN [None]
  - VISION BLURRED [None]
  - VOMITING [None]
  - DIZZINESS [None]
  - HEADACHE [None]
  - ANXIETY [None]
  - MOTOR DYSFUNCTION [None]
  - PAIN IN JAW [None]
  - DIARRHOEA [None]
  - PAIN IN EXTREMITY [None]
  - DISORIENTATION [None]
  - NAUSEA [None]
